FAERS Safety Report 4679303-1 (Version None)
Quarter: 2005Q2

REPORT INFORMATION
  Report Type: 
  Country: None (occurrence: None)
  Receive Date: 20050531
  Receipt Date: 20050516
  Transmission Date: 20051028
  Serious: Yes (Hospitalization)
  Sender: FDA-Public Use
  Company Number: B0360323A

PATIENT
  Sex: Female

DRUGS (2)
  1. PAXIL [Suspect]
     Dosage: PER DAY
     Dates: start: 20020301, end: 20030801
  2. CITALOPRAM [Concomitant]

REACTIONS (4)
  - AGITATION [None]
  - DRUG WITHDRAWAL SYNDROME [None]
  - PANIC ATTACK [None]
  - SUICIDAL IDEATION [None]
